FAERS Safety Report 9057850 (Version 2)
Quarter: 2013Q2

REPORT INFORMATION
  Report Type: Spontaneous
  Country: DE (occurrence: DE)
  Receive Date: 20130204
  Receipt Date: 20130425
  Transmission Date: 20140414
  Serious: Yes (Other)
  Sender: FDA-Public Use
  Company Number: DE-AMGEN-DEUCT2011066584

PATIENT
  Age: 20 Year
  Sex: Female

DRUGS (3)
  1. ENBREL [Suspect]
     Indication: JUVENILE IDIOPATHIC ARTHRITIS
     Dosage: 50 MG, WEEKLY
     Route: 058
     Dates: start: 20090406, end: 20120702
  2. METHOTREXATE [Concomitant]
     Dosage: 5 MG, UNK
     Route: 048
  3. CORTISONE [Concomitant]
     Dosage: UNK

REACTIONS (2)
  - Eye disorder [Unknown]
  - Visual acuity reduced [Unknown]
